FAERS Safety Report 8401845-3 (Version None)
Quarter: 2012Q2

REPORT INFORMATION
  Report Type: 
  Country: None (occurrence: None)
  Receive Date: 20120601
  Receipt Date: 20120524
  Transmission Date: 20120825
  Serious: Yes (Hospitalization)
  Sender: FDA-Public Use
  Company Number: DE-JNJFOC-20120518720

PATIENT
  Sex: Male

DRUGS (8)
  1. SIMVASTATIN [Suspect]
     Indication: ACCIDENTAL EXPOSURE
     Route: 048
     Dates: start: 20120524, end: 20120524
  2. PLAVIX [Suspect]
     Indication: ACCIDENTAL EXPOSURE
     Route: 065
     Dates: start: 20120524, end: 20120524
  3. TORSEMIDE [Suspect]
     Indication: ACCIDENTAL EXPOSURE
     Route: 048
     Dates: start: 20120524, end: 20120524
  4. METOPROLOL TARTRATE AND HYDROCHLOROTHIAZIDE [Suspect]
     Indication: ACCIDENTAL EXPOSURE
     Route: 048
     Dates: start: 20120524, end: 20120524
  5. ASPIRIN [Suspect]
     Indication: ACCIDENTAL EXPOSURE
     Route: 065
     Dates: start: 20120524, end: 20120524
  6. RISPERDAL [Suspect]
     Indication: ACCIDENTAL EXPOSURE
     Route: 048
     Dates: start: 20120524, end: 20120524
  7. PANTOPRAZOLE [Suspect]
     Indication: ACCIDENTAL EXPOSURE
     Route: 048
     Dates: start: 20120524, end: 20120524
  8. METFORMIN HCL [Suspect]
     Indication: ACCIDENTAL EXPOSURE
     Route: 065
     Dates: start: 20120524, end: 20120524

REACTIONS (1)
  - ACCIDENTAL EXPOSURE [None]
